FAERS Safety Report 17482706 (Version 1)
Quarter: 2020Q1

REPORT INFORMATION
  Report Type: Spontaneous
  Country: US (occurrence: US)
  Receive Date: 20200302
  Receipt Date: 20200302
  Transmission Date: 20200409
  Serious: Yes (Other)
  Sender: FDA-Public Use
  Company Number: US-SA-2020SA050568

PATIENT
  Age: 73 Year
  Sex: Male

DRUGS (10)
  1. VENETOCLAX. [Suspect]
     Active Substance: VENETOCLAX
     Dosage: 200 MG, QD (DAY 4-6)
  2. HYDROXYUREA. [Concomitant]
     Active Substance: HYDROXYUREA
  3. CLADRIBINE. [Concomitant]
     Active Substance: CLADRIBINE
     Indication: T-CELL PROLYMPHOCYTIC LEUKAEMIA
     Dosage: 5 MG/M2
     Route: 042
  4. VENETOCLAX. [Suspect]
     Active Substance: VENETOCLAX
     Dosage: 400 MG, QD (DAY 7 ONWARD)
  5. PENTOSTATIN. [Suspect]
     Active Substance: PENTOSTATIN
     Indication: T-CELL PROLYMPHOCYTIC LEUKAEMIA
     Dosage: 4 MG/M2, QW
  6. VENETOCLAX. [Suspect]
     Active Substance: VENETOCLAX
     Indication: T-CELL PROLYMPHOCYTIC LEUKAEMIA
     Dosage: 100 MG, QD (DAY 1-3)
  7. ALEMTUZUMAB [Suspect]
     Active Substance: ALEMTUZUMAB
     Indication: T-CELL PROLYMPHOCYTIC LEUKAEMIA
     Dosage: 30 MG, 3 TIMES A WEEK
     Route: 041
  8. ALEMTUZUMAB [Suspect]
     Active Substance: ALEMTUZUMAB
     Dosage: UNK
     Route: 041
  9. VENETOCLAX. [Suspect]
     Active Substance: VENETOCLAX
     Dosage: 300 MG, QD
  10. ALEMTUZUMAB [Suspect]
     Active Substance: ALEMTUZUMAB
     Dosage: 30 MG, 3 TIMES A WEEK
     Route: 041

REACTIONS (7)
  - Bone marrow failure [Recovering/Resolving]
  - Cytopenia [Recovering/Resolving]
  - Neutropenia [Recovering/Resolving]
  - Adenovirus infection [Recovered/Resolved]
  - Nephritis [Unknown]
  - Viraemia [Recovered/Resolved]
  - BK virus infection [Recovered/Resolved]
